FAERS Safety Report 7582951-2 (Version None)
Quarter: 2011Q2

REPORT INFORMATION
  Report Type: 
  Country: None (occurrence: None)
  Receive Date: 20110627
  Receipt Date: 20110627
  Transmission Date: 20111010
  Serious: Yes (Death)
  Sender: FDA-Public Use
  Company Number: None

PATIENT
  Age: 67 Year
  Sex: Female
  Weight: 84.8226 kg

DRUGS (2)
  1. JANUVIA [Suspect]
     Indication: TYPE 2 DIABETES MELLITUS
     Dosage: 100 MGS DAILY PO
     Route: 048
     Dates: start: 20091009, end: 20100222
  2. JANUVIA [Suspect]
     Indication: TYPE 2 DIABETES MELLITUS
     Dosage: 100 MGS DAILY PO
     Route: 048
     Dates: start: 20100222, end: 20110613

REACTIONS (5)
  - PANCREATITIS ACUTE [None]
  - ENDOTRACHEAL INTUBATION COMPLICATION [None]
  - VENTRICULAR TACHYCARDIA [None]
  - RESPIRATORY DISTRESS [None]
  - CARDIAC ARREST [None]
